FAERS Safety Report 4795484-3 (Version None)
Quarter: 2005Q4

REPORT INFORMATION
  Report Type: 
  Country: None (occurrence: None)
  Receive Date: 20051012
  Receipt Date: 20040511
  Transmission Date: 20060501
  Serious: Yes (Hospitalization, Disabling)
  Sender: FDA-Public Use
  Company Number: US-GLAXOSMITHKLINE-A0510865A

PATIENT
  Sex: Male
  Weight: 3.9 kg

DRUGS (2)
  1. CONTAC [Suspect]
     Route: 048
  2. TRIAMINIC SRT [Suspect]

REACTIONS (34)
  - ANTICONVULSANT DRUG LEVEL BELOW THERAPEUTIC [None]
  - ASTHENIA [None]
  - ATROPHY [None]
  - BLOOD CAFFEINE [None]
  - CEREBRAL INFARCTION [None]
  - CEREBRAL PALSY [None]
  - CEREBROVASCULAR ACCIDENT [None]
  - CONVULSION [None]
  - DYSARTHRIA [None]
  - FALL [None]
  - GAIT DISTURBANCE [None]
  - HEAD INJURY [None]
  - HEMIPARESIS [None]
  - HEMIPLEGIA [None]
  - ILL-DEFINED DISORDER [None]
  - JOINT CONTRACTURE [None]
  - LEARNING DISABILITY [None]
  - MENTAL IMPAIRMENT [None]
  - MIGRAINE [None]
  - MUSCLE CONTRACTIONS INVOLUNTARY [None]
  - MUSCLE CONTRACTURE [None]
  - NEONATAL DISORDER [None]
  - PERONEAL NERVE PALSY [None]
  - PNEUMONIA [None]
  - POLYTRAUMATISM [None]
  - POSTICTAL STATE [None]
  - RESPIRATION ABNORMAL [None]
  - RESPIRATORY DISORDER [None]
  - SEPSIS [None]
  - SKIN WRINKLING [None]
  - TACHYCARDIA [None]
  - TACHYPNOEA [None]
  - TREATMENT NONCOMPLIANCE [None]
  - TREMOR [None]
